FAERS Safety Report 5108497-9 (Version None)
Quarter: 2006Q3

REPORT INFORMATION
  Report Type: 
  Country: None (occurrence: None)
  Receive Date: 20060913
  Receipt Date: 20060901
  Transmission Date: 20061208
  Serious: Yes (Hospitalization, Other)
  Sender: FDA-Public Use
  Company Number: HQWYE267607SEP05

PATIENT
  Age: 27 Year
  Sex: Female

DRUGS (15)
  1. VENLAFAXINE HCL [Suspect]
     Indication: TONSILLITIS
     Dosage: SEE IMAGE
     Route: 048
     Dates: start: 20050614, end: 20050621
  2. VENLAFAXINE HCL [Suspect]
     Indication: TONSILLITIS
     Dosage: SEE IMAGE
     Route: 048
     Dates: start: 20050621, end: 20050831
  3. VENLAFAXINE HCL [Suspect]
     Indication: TONSILLITIS
     Dosage: SEE IMAGE
     Route: 048
     Dates: start: 20050628, end: 20050906
  4. BROACT (CEFPIROME SULFATE) [Suspect]
     Dosage: 1 G DAILY (DRIP INFUSION)
     Route: 042
     Dates: start: 20050831, end: 20050831
  5. ACETAMINOPHEN [Suspect]
     Indication: NASOPHARYNGITIS
     Dosage: 1200 MG 1X PER 1 DAY
     Route: 048
     Dates: start: 20060824, end: 20060826
  6. CODEINE PHOSPHATE (CODEINE PHOSPHATE) [Suspect]
     Indication: NASOPHARYNGITIS
     Dosage: 3% 3 G DAILY
     Route: 048
     Dates: start: 20050827, end: 20050828
  7. CLINDAMYCIN HYDROCHLORIDE [Suspect]
     Indication: TONSILLITIS
     Dosage: 600 MG DAILY, DRIP INFUSION
     Route: 042
     Dates: start: 20050831, end: 20050831
  8. MEIACT (CEFDITOREN PIVOXIL) [Suspect]
     Indication: NASOPHARYNGITIS
     Dosage: 300 MG 1X PER 1 DAY
     Route: 048
     Dates: start: 20050824, end: 20050825
  9. MUCOSOLVAN (AMBROXOL HYDROCHLORIDE) [Suspect]
     Indication: NASOPHARYNGITIS
     Dosage: 45 MG 1X PER 1 DAY
     Route: 048
     Dates: start: 20050827, end: 20050828
  10. POLARAMINE [Suspect]
     Indication: NASOPHARYNGITIS
     Dosage: 6 MG 1 X PER 1 DAY
     Route: 048
     Dates: start: 20050824, end: 20050825
  11. POLARAMINE [Suspect]
     Indication: NASOPHARYNGITIS
     Dosage: 6 MG 1 X PER 1 DAY
     Route: 048
     Dates: start: 20050827, end: 20050828
  12. AMOXICILLIN TRIHYDRATE [Suspect]
     Indication: NASOPHARYNGITIS
     Dosage: 750 MG 1X PER 1 DAY
     Route: 048
     Dates: start: 20050827, end: 20050828
  13. SLO-BID [Suspect]
     Indication: NASOPHARYNGITIS
     Dosage: 100 MG 1X PER 1 DAY
     Route: 048
     Dates: start: 20050827, end: 20050828
  14. PURSENNID (SENNA LEAF) [Concomitant]
  15. BROTIZOLAM (BROTIZOLAM) [Concomitant]

REACTIONS (5)
  - ACUTE TONSILLITIS [None]
  - DRUG ERUPTION [None]
  - DRUG INTERACTION [None]
  - PHARYNGOLARYNGEAL PAIN [None]
  - THERAPY NON-RESPONDER [None]
